FAERS Safety Report 5232666-0 (Version None)
Quarter: 2007Q1

REPORT INFORMATION
  Report Type: 
  Country: None (occurrence: None)
  Receive Date: 20070206
  Receipt Date: 20070206
  Transmission Date: 20070707
  Serious: Yes (Death)
  Sender: FDA-Public Use
  Company Number: None

PATIENT
  Sex: Female
  Weight: 53.6 kg

DRUGS (2)
  1. VELCADE [Suspect]
     Indication: MULTIPLE MYELOMA
     Dosage: 1 MG/M2 IV
     Route: 042
     Dates: start: 20061114, end: 20061114
  2. DOXORUBICIN HCL [Suspect]
     Indication: MULTIPLE MYELOMA
     Dosage: 10MG/M2 IV
     Route: 042
     Dates: start: 20061114, end: 20061114

REACTIONS (11)
  - BRAIN HERNIATION [None]
  - CEREBRAL HAEMORRHAGE [None]
  - CYTOMEGALOVIRUS OESOPHAGITIS [None]
  - DEEP VEIN THROMBOSIS [None]
  - FALL [None]
  - FEBRILE NEUTROPENIA [None]
  - HAEMATEMESIS [None]
  - HAEMORRHAGE INTRACRANIAL [None]
  - HEAD INJURY [None]
  - HYPERTENSION [None]
  - PLATELET COUNT DECREASED [None]
